FAERS Safety Report 6047204-2 (Version None)
Quarter: 2009Q1

REPORT INFORMATION
  Report Type: 
  Country: None (occurrence: None)
  Receive Date: 20090122
  Receipt Date: 20090107
  Transmission Date: 20090719
  Serious: Yes (Other)
  Sender: FDA-Public Use
  Company Number: US-PFIZER INC-2007098903

PATIENT
  Sex: Female
  Weight: 59 kg

DRUGS (12)
  1. CHANTIX [Suspect]
     Dosage: 1 MG, 2X/DAY
     Route: 048
     Dates: start: 20071001, end: 20071116
  2. DIPHENHYDRAMINE HYDROCHLORIDE [Suspect]
     Indication: RASH
     Dates: start: 20071116
  3. INSULIN [Concomitant]
     Indication: DIABETES MELLITUS
  4. NOVOLOG [Concomitant]
     Indication: DIABETES MELLITUS
  5. LISINOPRIL [Concomitant]
     Indication: BLOOD PRESSURE
     Route: 048
  6. FUROSEMIDE [Concomitant]
     Route: 048
  7. KLOR-CON [Concomitant]
     Route: 048
  8. EFFEXOR XR [Concomitant]
     Route: 048
  9. ACETYLSALICYLIC ACID SRT [Concomitant]
     Route: 048
  10. CENTRUM SILVER [Concomitant]
     Route: 048
  11. FLAXSEED OIL [Concomitant]
     Route: 048
  12. URSODIOL [Concomitant]
     Route: 048

REACTIONS (7)
  - ASTHENIA [None]
  - BLISTER [None]
  - FEELING HOT [None]
  - HERPES ZOSTER [None]
  - RASH [None]
  - SOMNOLENCE [None]
  - SWELLING [None]
